FAERS Safety Report 16049381 (Version 2)
Quarter: 2019Q2

REPORT INFORMATION
  Report Type: Report from Study
  Country: None (occurrence: PT)
  Receive Date: 20190307
  Receipt Date: 20190417
  Transmission Date: 20190711
  Serious: Yes (Hospitalization)
  Sender: FDA-Public Use
  Company Number: PT-ABBVIE-19P-130-2686437-00

PATIENT
  Age: 77 Year
  Sex: Female
  Weight: 42 kg

DRUGS (9)
  1. LETER [Concomitant]
     Indication: HYPOTHYROIDISM
     Route: 048
     Dates: start: 1985
  2. ANATABINA [Concomitant]
     Indication: DYSKINESIA
     Route: 048
     Dates: start: 20130706
  3. OMEPRAZOLE. [Concomitant]
     Active Substance: OMEPRAZOLE
     Indication: PRODUCT USED FOR UNKNOWN INDICATION
     Route: 048
     Dates: start: 2016
  4. CLONAZEPAM. [Concomitant]
     Active Substance: CLONAZEPAM
     Indication: MYOCLONUS
     Route: 048
     Dates: start: 20150812
  5. SELEGILINE [Concomitant]
     Active Substance: SELEGILINE
     Indication: PARKINSON^S DISEASE
     Route: 048
     Dates: start: 20180418
  6. VENLAFAXINA [Concomitant]
     Active Substance: VENLAFAXINE HYDROCHLORIDE
     Indication: PARKINSON^S DISEASE
     Route: 048
     Dates: start: 20170823
  7. MIDODRITE [Concomitant]
     Indication: HYPOTENSION
     Route: 048
     Dates: start: 20130901
  8. MIRTAZAPINE. [Concomitant]
     Active Substance: MIRTAZAPINE
     Indication: INSOMNIA
     Route: 048
     Dates: start: 201801
  9. DUODOPA [Suspect]
     Active Substance: CARBIDOPA\LEVODOPA
     Indication: PARKINSON^S DISEASE
     Dosage: 0.4ML/HR; 1.6 L/DAY
     Route: 050
     Dates: start: 20101005

REACTIONS (1)
  - Intestinal obstruction [Recovered/Resolved]

NARRATIVE: CASE EVENT DATE: 20190225
